FAERS Safety Report 24326663 (Version 1)
Quarter: 2024Q3

REPORT INFORMATION
  Report Type: Spontaneous
  Country: US (occurrence: None)
  Receive Date: 20240917
  Receipt Date: 20240917
  Transmission Date: 20241017
  Serious: Yes (Death, Other)
  Sender: ASTRAZENECA
  Company Number: 2024A209452

PATIENT
  Age: 55 Year
  Sex: Male

DRUGS (11)
  1. OSIMERTINIB [Suspect]
     Active Substance: OSIMERTINIB
     Indication: Lung adenocarcinoma
     Route: 048
  2. OSIMERTINIB [Suspect]
     Active Substance: OSIMERTINIB
     Indication: Lung adenocarcinoma
     Route: 048
  3. DABRAFENIB [Suspect]
     Active Substance: DABRAFENIB
     Indication: Lung adenocarcinoma
  4. TRAMETINIB [Suspect]
     Active Substance: TRAMETINIB
     Indication: Lung adenocarcinoma
  5. CAPMATINIB [Suspect]
     Active Substance: CAPMATINIB
     Indication: Lung adenocarcinoma
  6. ENCORAFENIB [Concomitant]
     Active Substance: ENCORAFENIB
     Indication: Lung adenocarcinoma
  7. ENCORAFENIB [Concomitant]
     Active Substance: ENCORAFENIB
     Indication: Lung adenocarcinoma
     Dosage: 450.0MG UNKNOWN
  8. ENCORAFENIB [Concomitant]
     Active Substance: ENCORAFENIB
     Indication: Lung adenocarcinoma
     Dosage: 450.0MG UNKNOWN
  9. BINIMETINIB [Concomitant]
     Active Substance: BINIMETINIB
     Indication: Lung adenocarcinoma
  10. BINIMETINIB [Concomitant]
     Active Substance: BINIMETINIB
     Indication: Lung adenocarcinoma
     Dosage: 45.0MG UNKNOWN
  11. BINIMETINIB [Concomitant]
     Active Substance: BINIMETINIB
     Indication: Lung adenocarcinoma
     Dosage: 45.0MG UNKNOWN

REACTIONS (10)
  - Malignant neoplasm progression [Fatal]
  - Acquired gene mutation [Fatal]
  - BRAF V600E mutation positive [Unknown]
  - Metastases to central nervous system [Unknown]
  - Hepatitis [Unknown]
  - Rash [Unknown]
  - Pleuritic pain [Unknown]
  - Pyrexia [Unknown]
  - Fatigue [Unknown]
  - Pain [Unknown]
